FAERS Safety Report 21006950 (Version 1)
Quarter: 2022Q2

REPORT INFORMATION
  Report Type: Spontaneous
  Country: US (occurrence: US)
  Receive Date: 20220625
  Receipt Date: 20220625
  Transmission Date: 20220721
  Serious: No
  Sender: FDA-Public Use
  Company Number: US-BRISTOL-MYERS SQUIBB COMPANY-2022-060002

PATIENT
  Age: 66 Year
  Sex: Female
  Weight: 115.6 kg

DRUGS (1)
  1. POMALYST [Suspect]
     Active Substance: POMALIDOMIDE
     Indication: Plasma cell myeloma
     Dosage: FREQ -  3W,1W OFF
     Route: 048
     Dates: start: 20220401

REACTIONS (2)
  - Full blood count decreased [Unknown]
  - Blood glucose increased [Unknown]
